FAERS Safety Report 11650238 (Version 2)
Quarter: 2015Q4

REPORT INFORMATION
  Report Type: Spontaneous
  Country: US (occurrence: US)
  Receive Date: 20151021
  Receipt Date: 20151116
  Transmission Date: 20160304
  Serious: No
  Sender: FDA-Public Use
  Company Number: US-PFIZER INC-2015335322

PATIENT
  Age: 57 Year
  Sex: Female
  Weight: 128 kg

DRUGS (2)
  1. LYRICA [Suspect]
     Active Substance: PREGABALIN
     Indication: FIBROMYALGIA
     Dosage: 200 MG (2 CAPSULES OF 100MG), 3X/DAY
     Route: 048
  2. LYRICA [Suspect]
     Active Substance: PREGABALIN
     Dosage: 100 MG, 2X/DAY (100MG CAPSULE BY MOUTH IN THE MORNING AND AT NIGHT)
     Route: 048
     Dates: start: 201508

REACTIONS (1)
  - Bedridden [Unknown]
